FAERS Safety Report 9801801 (Version 1)
Quarter: 2014Q1

REPORT INFORMATION
  Report Type: Spontaneous
  Country: US (occurrence: US)
  Receive Date: 20140107
  Receipt Date: 20140107
  Transmission Date: 20141002
  Serious: Yes (Death)
  Sender: FDA-Public Use
  Company Number: US-BAYER-2014-002599

PATIENT
  Age: 50 Year
  Sex: Female

DRUGS (6)
  1. DIPHENHYDRAMINE HYDROCHLORIDE [Suspect]
     Route: 042
  2. HEROIN [Suspect]
     Route: 042
  3. METHADONE [Suspect]
     Route: 042
  4. COCAINE [Suspect]
     Route: 042
  5. PROMETHAZINE [Suspect]
     Route: 042
  6. QUETIAPINE [Suspect]
     Route: 042

REACTIONS (1)
  - Drug abuse [Fatal]
